FAERS Safety Report 11569050 (Version 6)
Quarter: 2015Q4

REPORT INFORMATION
  Report Type: Report from Study
  Country: US (occurrence: US)
  Receive Date: 20150929
  Receipt Date: 20151019
  Transmission Date: 20160304
  Serious: Yes (Hospitalization, Other)
  Sender: FDA-Public Use
  Company Number: US-MALLINCKRODT-T201504390

PATIENT
  Age: 50 Year
  Sex: Male

DRUGS (1)
  1. REPOSITORY CORTICOTROPIN INJECTION [Suspect]
     Active Substance: CORTICOTROPIN
     Indication: PROTEINURIA
     Dosage: 80U 2X/WEEK
     Route: 058
     Dates: start: 20150202, end: 20150905

REACTIONS (4)
  - Hypertension [Not Recovered/Not Resolved]
  - Vein collapse [Not Recovered/Not Resolved]
  - Wound [Recovered/Resolved]
  - Diabetic blindness [Not Recovered/Not Resolved]

NARRATIVE: CASE EVENT DATE: 201509
